FAERS Safety Report 5705497-2 (Version None)
Quarter: 2008Q2

REPORT INFORMATION
  Report Type: 
  Country: None (occurrence: None)
  Receive Date: 20080411
  Receipt Date: 20080402
  Transmission Date: 20081010
  Serious: Yes (Other)
  Sender: FDA-Public Use
  Company Number: 163-21880-08021163

PATIENT
  Age: 42 Year
  Sex: Female

DRUGS (1)
  1. REVLIMID [Suspect]
     Indication: MULTIPLE MYELOMA
     Dosage: X21 DAYS, EVERY 28 DAYS, ORAL
     Route: 048
     Dates: start: 20080107

REACTIONS (2)
  - GASTRECTOMY [None]
  - MENSTRUATION IRREGULAR [None]
